FAERS Safety Report 15630527 (Version 3)
Quarter: 2018Q4

REPORT INFORMATION
  Report Type: Spontaneous
  Country: PT (occurrence: PT)
  Receive Date: 20181119
  Receipt Date: 20181128
  Transmission Date: 20190205
  Serious: Yes (Death, Hospitalization, Other)
  Sender: FDA-Public Use
  Company Number: PT-AUROBINDO-AUR-APL-2018-054194

PATIENT
  Age: 55 Year
  Sex: Male

DRUGS (30)
  1. TRAMADOL. [Suspect]
     Active Substance: TRAMADOL
     Dosage: 200 UNK, UNK
     Route: 065
     Dates: start: 201201
  2. AMITRIPTYLINE [Suspect]
     Active Substance: AMITRIPTYLINE
     Indication: CENTRAL PAIN SYNDROME
     Dosage: 50 MILLIGRAM, ONCE A DAY
     Route: 065
     Dates: start: 200202
  3. CLONAZEPAM. [Concomitant]
     Active Substance: CLONAZEPAM
     Indication: CENTRAL PAIN SYNDROME
     Dosage: 0.25 MILLIGRAM/SQ. METER, ONCE A DAY
     Route: 065
     Dates: start: 201201
  4. GABAPENTIN. [Suspect]
     Active Substance: GABAPENTIN
     Dosage: 800 MILLIGRAM, ONCE A DAY
     Route: 065
     Dates: start: 200709
  5. PARACETAMOL [Suspect]
     Active Substance: ACETAMINOPHEN
     Indication: CENTRAL PAIN SYNDROME
     Dosage: 3 GRAM, ONCE A DAY
     Route: 065
  6. AMITRIPTYLINE [Suspect]
     Active Substance: AMITRIPTYLINE
     Dosage: 25 MILLIGRAM, ONCE A DAY
     Route: 065
  7. GABAPENTIN. [Suspect]
     Active Substance: GABAPENTIN
     Indication: CENTRAL PAIN SYNDROME
     Dosage: 1600 MILLIGRAM, ONCE A DAY
     Route: 065
     Dates: start: 200202
  8. STAVUDINE. [Suspect]
     Active Substance: STAVUDINE
     Indication: HIV INFECTION
  9. VENLAFAXINE [Concomitant]
     Active Substance: VENLAFAXINE HYDROCHLORIDE
     Indication: CENTRAL PAIN SYNDROME
     Dosage: 75 MILLIGRAM, ONCE A DAY
     Route: 062
     Dates: start: 200709
  10. BACLOFEN. [Suspect]
     Active Substance: BACLOFEN
     Indication: CENTRAL PAIN SYNDROME
     Dosage: 10 MG, QD
     Route: 065
     Dates: start: 200703
  11. STAVUDINE. [Suspect]
     Active Substance: STAVUDINE
     Indication: ACQUIRED IMMUNODEFICIENCY SYNDROME
     Dosage: UNK
     Route: 016
  12. GABAPENTIN. [Suspect]
     Active Substance: GABAPENTIN
     Dosage: 600 MILLIGRAM, TWO TIMES A DAY
     Route: 065
     Dates: start: 201201
  13. GABAPENTIN. [Suspect]
     Active Substance: GABAPENTIN
     Dosage: 2400 MILLIGRAM, ONCE A DAY
     Route: 065
  14. RITONAVIR. [Suspect]
     Active Substance: RITONAVIR
     Indication: ACQUIRED IMMUNODEFICIENCY SYNDROME
     Dosage: UNK
     Route: 065
  15. PYRIMETHAMINE [Concomitant]
     Active Substance: PYRIMETHAMINE
     Indication: PRODUCT USED FOR UNKNOWN INDICATION
     Dosage: UNK
     Route: 065
  16. BACLOFEN. [Suspect]
     Active Substance: BACLOFEN
     Dosage: 20 MILLIGRAM, ONCE A DAY
     Route: 065
  17. BUPRENORPHINE. [Concomitant]
     Active Substance: BUPRENORPHINE
     Indication: CENTRAL PAIN SYNDROME
     Dosage: 35 UG/HR, UNK
     Route: 062
     Dates: start: 200709
  18. TENOFOVIR [Concomitant]
     Active Substance: TENOFOVIR
     Dosage: UNK ()
     Route: 065
  19. SULFADIAZINE. [Concomitant]
     Active Substance: SULFADIAZINE
     Indication: ACQUIRED IMMUNODEFICIENCY SYNDROME
     Dosage: UNK
     Route: 065
  20. GABAPENTIN. [Suspect]
     Active Substance: GABAPENTIN
     Dosage: 1600 MILLIGRAM, ONCE A DAY
     Route: 065
  21. GABAPENTIN. [Suspect]
     Active Substance: GABAPENTIN
     Dosage: 1200 MILLIGRAM, ONCE A DAY
     Route: 065
  22. TRAMADOL. [Suspect]
     Active Substance: TRAMADOL
     Indication: CENTRAL PAIN SYNDROME
     Dosage: 100 MG, BID
     Route: 065
     Dates: start: 200202
  23. LOPINAVIR + RITONAVIR [Suspect]
     Active Substance: LOPINAVIR\RITONAVIR
     Indication: HIV INFECTION
     Dosage: UNK UNK, UNK
     Route: 016
  24. TENOFOVIR [Concomitant]
     Active Substance: TENOFOVIR
     Indication: ACQUIRED IMMUNODEFICIENCY SYNDROME
     Dosage: UNK
     Route: 065
  25. FOLINIC ACID [Concomitant]
     Active Substance: LEUCOVORIN
     Indication: ACQUIRED IMMUNODEFICIENCY SYNDROME
     Dosage: UNK
     Route: 065
  26. MIRTAZAPINE. [Concomitant]
     Active Substance: MIRTAZAPINE
     Indication: CENTRAL PAIN SYNDROME
     Dosage: 15 MILLIGRAM, ONCE A DAY
     Route: 065
     Dates: start: 201201
  27. TRAMADOL. [Suspect]
     Active Substance: TRAMADOL
     Dosage: 200 MILLIGRAM, ONCE A DAY
     Route: 065
  28. LAMIVUDINE. [Suspect]
     Active Substance: LAMIVUDINE
     Indication: ACQUIRED IMMUNODEFICIENCY SYNDROME
     Dosage: UNK
     Route: 065
  29. LAMIVUDINE. [Suspect]
     Active Substance: LAMIVUDINE
     Indication: HIV INFECTION
  30. LOPINAVIR [Suspect]
     Active Substance: LOPINAVIR
     Indication: ACQUIRED IMMUNODEFICIENCY SYNDROME
     Dosage: UNK
     Route: 065

REACTIONS (34)
  - Polyneuropathy [Unknown]
  - Coagulopathy [Fatal]
  - CD4 lymphocytes decreased [Unknown]
  - Hemiplegia [Unknown]
  - Vomiting [Unknown]
  - Hepatic failure [Fatal]
  - Pancytopenia [Fatal]
  - Hypoaesthesia [Unknown]
  - Dizziness [Unknown]
  - Central pain syndrome [Unknown]
  - Nasopharyngitis [Unknown]
  - Pain [Unknown]
  - Allodynia [Unknown]
  - Portal hypertension [Fatal]
  - Renal failure [Recovering/Resolving]
  - Nephropathy [Unknown]
  - Infection reactivation [Unknown]
  - Somnolence [Unknown]
  - Electric shock [Unknown]
  - Renal impairment [Unknown]
  - Musculoskeletal stiffness [Unknown]
  - Encephalopathy [Fatal]
  - Product use in unapproved indication [Unknown]
  - Dysaesthesia [Unknown]
  - Neuralgia [Unknown]
  - Drug intolerance [Unknown]
  - Discomfort [Unknown]
  - Muscle spasticity [Unknown]
  - Ascites [Fatal]
  - Gastrointestinal haemorrhage [Fatal]
  - Condition aggravated [Unknown]
  - Paraesthesia [Unknown]
  - Facial pain [Unknown]
  - Liver disorder [Fatal]

NARRATIVE: CASE EVENT DATE: 200301
